FAERS Safety Report 8544519-0 (Version None)
Quarter: 2012Q3

REPORT INFORMATION
  Report Type: 
  Country: None (occurrence: None)
  Receive Date: 20120719
  Receipt Date: 20120719
  Transmission Date: 20120928
  Serious: Yes (Other)
  Sender: FDA-Public Use
  Company Number: None

PATIENT
  Age: 34 Year
  Sex: Female
  Weight: 79.5 kg

DRUGS (4)
  1. BELIMUMAB [Suspect]
     Indication: SYSTEMIC LUPUS ERYTHEMATOSUS
     Dosage: 800 MG IN 250 ML NORMAL SALINE MONTHLY IV
     Route: 042
     Dates: start: 20120518
  2. BELIMUMAB [Suspect]
     Indication: SYSTEMIC LUPUS ERYTHEMATOSUS
     Dosage: 800 MG IN 250 ML NORMAL SALINE MONTHLY IV
     Route: 042
     Dates: start: 20120614
  3. BELIMUMAB [Suspect]
     Indication: SYSTEMIC LUPUS ERYTHEMATOSUS
     Dosage: 800 MG IN 250 ML NORMAL SALINE MONTHLY IV
     Route: 042
     Dates: start: 20120503
  4. BELIMUMAB [Suspect]
     Indication: SYSTEMIC LUPUS ERYTHEMATOSUS
     Dosage: 800 MG IN 250 ML NORMAL SALINE MONTHLY IV
     Route: 042
     Dates: start: 20120418

REACTIONS (2)
  - OEDEMA PERIPHERAL [None]
  - SWELLING [None]
